FAERS Safety Report 6474933-9 (Version None)
Quarter: 2009Q4

REPORT INFORMATION
  Report Type: 
  Country: None (occurrence: None)
  Receive Date: 20091204
  Receipt Date: 20091119
  Transmission Date: 20100525
  Serious: Yes (Other)
  Sender: FDA-Public Use
  Company Number: GB-GENENTECH-289354

PATIENT
  Sex: Female

DRUGS (2)
  1. RANIBIZUMAB [Suspect]
     Indication: MACULAR DEGENERATION
     Dosage: 0.5 MG, UNK
     Route: 031
     Dates: start: 20090710
  2. RANIBIZUMAB [Suspect]
     Dosage: 0.5 MG, UNK
     Route: 031
     Dates: start: 20090812

REACTIONS (1)
  - ANGLE CLOSURE GLAUCOMA [None]
